FAERS Safety Report 9843956 (Version 1)
Quarter: 2013Q4

REPORT INFORMATION
  Report Type: Spontaneous
  Country: US (occurrence: None)
  Receive Date: 20131223
  Receipt Date: 20131223
  Transmission Date: 20140711
  Serious: No
  Sender: FDA-Public Use
  Company Number: 1000049947

PATIENT
  Age: 59 Year
  Sex: Female

DRUGS (10)
  1. LINZESS (LINACLOTIDE) (290 MICROGRAM, CAPSULES) [Suspect]
     Indication: CONSTIPATION
     Route: 048
     Dates: start: 20130610
  2. BLOOD PRESSURE MEDICATION NOS (BLOOD PRESSURE MEDICATION NOS (BLOOD PRESSURE MEDICATION NOS) [Concomitant]
  3. VITAMIN A (VITAMIN A) (VITAMIN A) [Concomitant]
  4. POTASSIUM (POTASSIUM) (POTASSIUM) [Concomitant]
  5. KLONOPIN (CLONAZEPAM) (CLONAZEPAM) [Concomitant]
  6. INTUNIV (GUANFACINE HYDROCHLORIDE) (GUANFACINE HYDROCHLORIDE) [Concomitant]
  7. MVI (VITAMINS NOS) (VITAMINS NOS) [Concomitant]
  8. LAMICTA (LAMOTRIGINE) (LAMOTRIGINE) [Concomitant]
  9. EYE MEDICATION NOS (EYE MEDICATION NOS) (EYE MEDICATION NOS) [Concomitant]
  10. OMEPRAZOLE (OMEPRAZOLE) (OMEPRAZOLE) [Concomitant]

REACTIONS (2)
  - Medication error [None]
  - Accidental overdose [None]
